FAERS Safety Report 8595574-3 (Version None)
Quarter: 2012Q3

REPORT INFORMATION
  Report Type: 
  Country: None (occurrence: None)
  Receive Date: 20120801
  Receipt Date: 20120720
  Transmission Date: 20120928
  Serious: Yes (Life-Threatening, Other)
  Sender: FDA-Public Use
  Company Number: 2012P1051151

PATIENT
  Age: 68 Year
  Sex: Female

DRUGS (2)
  1. MORPHINE SULFATE [Suspect]
  2. CLONIDINE [Suspect]

REACTIONS (2)
  - CARDIAC ARREST [None]
  - MEDICAL DEVICE CHANGE [None]
